FAERS Safety Report 10432400 (Version 1)
Quarter: 2014Q3

REPORT INFORMATION
  Report Type: Spontaneous
  Country: US (occurrence: None)
  Receive Date: 20140904
  Receipt Date: 20140904
  Transmission Date: 20150326
  Serious: No
  Sender: FDA-Public Use
  Company Number: None

PATIENT
  Age: 63 Year
  Sex: Female
  Weight: 79.38 kg

DRUGS (1)
  1. CLINDAMYCIN [Suspect]
     Active Substance: CLINDAMYCIN\CLINDAMYCIN PHOSPHATE
     Indication: PAROTITIS
     Dosage: 1 PILL, 2 X DAY, FOR 7 DAYS, TWICE DAILY, TAKEN BY MOUTH
     Route: 048
     Dates: start: 20140714, end: 20140721

REACTIONS (3)
  - Diarrhoea [None]
  - Fatigue [None]
  - Malaise [None]

NARRATIVE: CASE EVENT DATE: 20140716
